FAERS Safety Report 16914199 (Version 2)
Quarter: 2019Q4

REPORT INFORMATION
  Report Type: Spontaneous
  Country: US (occurrence: US)
  Receive Date: 20191014
  Receipt Date: 20191205
  Transmission Date: 20200122
  Serious: Yes (Hospitalization, Other)
  Sender: FDA-Public Use
  Company Number: US-INCYTE CORPORATION-2019IN010160

PATIENT

DRUGS (7)
  1. POTASSIUM CHLORIDE. [Concomitant]
     Active Substance: POTASSIUM CHLORIDE
     Indication: PRODUCT USED FOR UNKNOWN INDICATION
     Dosage: 10 MEQ, QD
     Route: 048
  2. JAKAFI [Suspect]
     Active Substance: RUXOLITINIB
     Dosage: 5 MILLIGRAM, BID
     Route: 048
     Dates: start: 20181129
  3. JAKAFI [Suspect]
     Active Substance: RUXOLITINIB
     Indication: MYELOPROLIFERATIVE NEOPLASM
     Dosage: 5 MILLIGRAM, BID
     Route: 048
     Dates: start: 20181030
  4. FILGRASTIM SNDZ [Concomitant]
     Indication: PRODUCT USED FOR UNKNOWN INDICATION
     Dosage: 0.8ML QD (EVERY 1700H)
     Route: 058
  5. FUROSEMIDE. [Concomitant]
     Active Substance: FUROSEMIDE
     Indication: PRODUCT USED FOR UNKNOWN INDICATION
     Dosage: 40 MILLIGRAM, QD
     Route: 048
  6. AMLODIPINE [Concomitant]
     Active Substance: AMLODIPINE BESYLATE
     Indication: PRODUCT USED FOR UNKNOWN INDICATION
     Route: 065
  7. JAKAFI [Suspect]
     Active Substance: RUXOLITINIB
     Dosage: 5 MILLIGRAM, BID
     Route: 048
     Dates: start: 20181130

REACTIONS (26)
  - Nervous system disorder [Recovered/Resolved]
  - Pulmonary hypertension [Unknown]
  - Fluid overload [Unknown]
  - Generalised oedema [Unknown]
  - Febrile neutropenia [Unknown]
  - Arteriosclerosis coronary artery [Unknown]
  - Ataxia [Unknown]
  - Malnutrition [Unknown]
  - Pancytopenia [Unknown]
  - Tricuspid valve incompetence [Unknown]
  - Cardiomyopathy [Unknown]
  - Interstitial lung disease [Unknown]
  - Aortic valve stenosis [Unknown]
  - Ascites [Unknown]
  - Off label use [Unknown]
  - Hypothyroidism [Unknown]
  - Pulmonary fibrosis [Unknown]
  - Cardiomegaly [Unknown]
  - Hyponatraemia [Recovering/Resolving]
  - Pneumonia [Unknown]
  - Urinary retention [Unknown]
  - Myelodysplastic syndrome [Unknown]
  - Hiatus hernia [Unknown]
  - Heart valve incompetence [Unknown]
  - Atrial fibrillation [Unknown]
  - Haemoglobin decreased [Unknown]
